FAERS Safety Report 24908099 (Version 1)
Quarter: 2025Q1

REPORT INFORMATION
  Report Type: Spontaneous
  Country: NL (occurrence: NL)
  Receive Date: 20250131
  Receipt Date: 20250131
  Transmission Date: 20250408
  Serious: Yes (Death, Other)
  Sender: BOEHRINGER INGELHEIM
  Company Number: NL-BoehringerIngelheim-2025-BI-005660

PATIENT
  Age: 67 Year
  Sex: Female

DRUGS (3)
  1. OFEV [Suspect]
     Active Substance: NINTEDANIB
     Indication: Product used for unknown indication
     Dates: start: 202407, end: 202411
  2. OXYGEN [Concomitant]
     Active Substance: OXYGEN
     Indication: Prophylaxis
  3. OXYCODONE [Concomitant]
     Active Substance: OXYCODONE
     Indication: Product used for unknown indication

REACTIONS (5)
  - Euthanasia [Fatal]
  - Cardiac failure [Unknown]
  - General physical health deterioration [Not Recovered/Not Resolved]
  - Respiratory tract infection [Unknown]
  - General physical health deterioration [Unknown]

NARRATIVE: CASE EVENT DATE: 20241001
